FAERS Safety Report 15394095 (Version 2)
Quarter: 2018Q3

REPORT INFORMATION
  Report Type: Report from Study
  Country: None (occurrence: RO)
  Receive Date: 20180917
  Receipt Date: 20180926
  Transmission Date: 20181010
  Serious: Yes (Hospitalization, Other)
  Sender: FDA-Public Use
  Company Number: RO-ABBVIE-18S-135-2485899-00

PATIENT
  Age: 71 Year
  Sex: Female

DRUGS (13)
  1. METOPROLOL. [Concomitant]
     Active Substance: METOPROLOL
     Indication: HYPERTENSION
     Route: 048
  2. INDAPAMIDE. [Concomitant]
     Active Substance: INDAPAMIDE
     Indication: HYPERTENSION
     Route: 048
  3. VIEKIRAX [Suspect]
     Active Substance: OMBITASVIR\PARITAPREVIR\RITONAVIR
     Indication: HEPATIC CIRRHOSIS
  4. EXVIERA [Suspect]
     Active Substance: DASABUVIR
     Indication: HEPATITIS C
     Route: 048
     Dates: start: 20180711
  5. RAMIPRIL. [Concomitant]
     Active Substance: RAMIPRIL
     Indication: HYPERTENSION
     Route: 048
  6. VIEKIRAX [Suspect]
     Active Substance: OMBITASVIR\PARITAPREVIR\RITONAVIR
     Indication: HEPATITIS C
     Route: 048
     Dates: start: 20180711
  7. ALPHA D3 [Concomitant]
     Active Substance: ALFACALCIDOL
     Indication: OSTEOPENIA
     Route: 048
  8. EXVIERA [Suspect]
     Active Substance: DASABUVIR
     Indication: HEPATIC CIRRHOSIS
  9. VIREGYT?K [Concomitant]
     Indication: PARKINSON^S DISEASE
     Route: 048
  10. EUTHYROX [Concomitant]
     Active Substance: LEVOTHYROXINE SODIUM
     Indication: THYROID DISORDER
     Route: 048
  11. RIVOTRIL [Concomitant]
     Active Substance: CLONAZEPAM
     Indication: PRODUCT USED FOR UNKNOWN INDICATION
     Route: 048
  12. TRITACE [Concomitant]
     Active Substance: RAMIPRIL
     Indication: HYPERTENSION
     Route: 048
  13. ALPHA D3 [Concomitant]
     Active Substance: ALFACALCIDOL
     Indication: OSTEOPOROSIS

REACTIONS (10)
  - Vomiting [Recovered/Resolved]
  - General physical health deterioration [Recovered/Resolved]
  - Blood bilirubin increased [Recovered/Resolved]
  - Decreased appetite [Recovered/Resolved]
  - Hyperbilirubinaemia [Recovered/Resolved]
  - Pruritus [Not Recovered/Not Resolved]
  - Jaundice [Recovered/Resolved]
  - Rash macular [Recovered/Resolved]
  - Sleep disorder [Recovered/Resolved]
  - Somnolence [Recovered/Resolved]

NARRATIVE: CASE EVENT DATE: 2018
